FAERS Safety Report 12552336 (Version 2)
Quarter: 2016Q3

REPORT INFORMATION
  Report Type: Spontaneous
  Country: US (occurrence: US)
  Receive Date: 20160713
  Receipt Date: 20160912
  Transmission Date: 20161109
  Serious: No
  Sender: FDA-Public Use
  Company Number: US-GLAXOSMITHKLINE-US2016094111

PATIENT
  Age: 70 Year
  Sex: Male

DRUGS (7)
  1. LIVALO [Concomitant]
     Active Substance: PITAVASTATIN CALCIUM
  2. ASPIRIN (BABY) [Concomitant]
     Active Substance: ASPIRIN
  3. PLENDIL [Concomitant]
     Active Substance: FELODIPINE
  4. AVODART [Suspect]
     Active Substance: DUTASTERIDE
     Indication: BENIGN PROSTATIC HYPERPLASIA
     Dosage: 1 DF, 1D
  5. FAMOTIDINE. [Concomitant]
     Active Substance: FAMOTIDINE
  6. FENOFIBRATE. [Concomitant]
     Active Substance: FENOFIBRATE
  7. CLOPIDOGREL [Concomitant]
     Active Substance: CLOPIDOGREL BISULFATE

REACTIONS (4)
  - Drug ineffective [Unknown]
  - Micturition urgency [Unknown]
  - Hypertonic bladder [Not Recovered/Not Resolved]
  - Product quality issue [Unknown]

NARRATIVE: CASE EVENT DATE: 20160628
